FAERS Safety Report 8540449-9 (Version None)
Quarter: 2012Q3

REPORT INFORMATION
  Report Type: 
  Country: None (occurrence: None)
  Receive Date: 20120726
  Receipt Date: 20110909
  Transmission Date: 20120928
  Serious: No
  Sender: FDA-Public Use
  Company Number: US-ASTRAZENECA-2011SE42398

PATIENT
  Age: 66 Year
  Sex: Female
  Weight: 61.7 kg

DRUGS (8)
  1. ATIVAN [Interacting]
     Route: 065
  2. VICODIN [Concomitant]
     Indication: BACK PAIN
     Dosage: AS REQUIRED
     Route: 048
  3. CITALOPRAM HYDROBROMIDE [Concomitant]
     Indication: INSOMNIA
     Dosage: AT NIGHT
     Route: 048
  4. WELLBUTRIN SR [Concomitant]
  5. BUPROPION HYDROCHLORIDE [Concomitant]
     Indication: DEPRESSION
     Dosage: DAILY
     Route: 048
  6. CELEXA [Concomitant]
  7. SEROQUEL [Suspect]
     Indication: BIPOLAR DISORDER
     Route: 048
     Dates: start: 20100701
  8. VICODIN [Concomitant]
     Indication: ARTHRALGIA
     Dosage: AS REQUIRED
     Route: 048

REACTIONS (5)
  - DRUG INTERACTION [None]
  - APHASIA [None]
  - TOOTH FRACTURE [None]
  - HYPOAESTHESIA [None]
  - FALL [None]
